FAERS Safety Report 9200619 (Version 4)
Quarter: 2013Q2

REPORT INFORMATION
  Report Type: Spontaneous
  Country: IE (occurrence: IE)
  Receive Date: 20130330
  Receipt Date: 20130416
  Transmission Date: 20140414
  Serious: Yes (Hospitalization, Other)
  Sender: FDA-Public Use
  Company Number: IE-PFIZER INC-2006071866

PATIENT
  Age: 18 Year
  Sex: Male
  Weight: 70 kg

DRUGS (2)
  1. IBUPROFEN [Suspect]
     Indication: BACK PAIN
     Dosage: (7) 400 MG TABLETS ONCE, 2800 MG ONCE
     Route: 048
  2. IBUPROFEN [Suspect]
     Indication: INTENTIONAL OVERDOSE

REACTIONS (4)
  - Intentional overdose [Recovered/Resolved]
  - Drug abuse [Recovered/Resolved]
  - Pancreatitis acute [Recovered/Resolved]
  - Intentional self-injury [Recovered/Resolved]
